FAERS Safety Report 6329588-0 (Version None)
Quarter: 2009Q3

REPORT INFORMATION
  Report Type: 
  Country: None (occurrence: None)
  Receive Date: 20090826
  Receipt Date: 20081010
  Transmission Date: 20100115
  Serious: No
  Sender: FDA-Public Use
  Company Number: PT-MERCK-0810PRT00005

PATIENT
  Age: 63 Year
  Sex: Female

DRUGS (5)
  1. VYTORIN [Suspect]
     Indication: HYPERCHOLESTEROLAEMIA
     Route: 048
     Dates: start: 20070514
  2. VYTORIN [Suspect]
     Route: 048
     Dates: start: 20070601
  3. VYTORIN [Suspect]
     Route: 048
     Dates: start: 20070901
  4. VYTORIN [Suspect]
     Route: 048
     Dates: start: 20081006
  5. ZETIA [Concomitant]
     Indication: HYPERCHOLESTEROLAEMIA
     Route: 048
     Dates: start: 20080502, end: 20080703

REACTIONS (1)
  - MYALGIA [None]
